FAERS Safety Report 8029319-2 (Version None)
Quarter: 2012Q1

REPORT INFORMATION
  Report Type: 
  Country: None (occurrence: None)
  Receive Date: 20120106
  Receipt Date: 20111229
  Transmission Date: 20120608
  Serious: Yes (Hospitalization)
  Sender: FDA-Public Use
  Company Number: US-MYLANLABS-2012S1000074

PATIENT
  Age: 78 Year
  Sex: Female

DRUGS (1)
  1. TEMAZEPAM [Suspect]
     Dates: end: 20111215

REACTIONS (3)
  - MENTAL STATUS CHANGES [None]
  - SYNCOPE [None]
  - DRUG INTERACTION [None]
